FAERS Safety Report 19363488 (Version 1)
Quarter: 2021Q2

REPORT INFORMATION
  Report Type: Spontaneous
  Country: GB (occurrence: GB)
  Receive Date: 20210602
  Receipt Date: 20210602
  Transmission Date: 20210717
  Serious: Yes (Other)
  Sender: FDA-Public Use
  Company Number: GB-PFIZER INC-2021575087

PATIENT
  Age: 38 Year
  Sex: Female

DRUGS (3)
  1. MISOPROSTOL. [Suspect]
     Active Substance: MISOPROSTOL
     Indication: ABORTION
  2. MISOPROSTOL. [Suspect]
     Active Substance: MISOPROSTOL
     Indication: ILL-DEFINED DISORDER
     Dosage: 2 TABLETS UNDER TONGUE
     Route: 060
     Dates: start: 20200106, end: 20200106
  3. LOSARTAN. [Concomitant]
     Active Substance: LOSARTAN
     Indication: GESTATIONAL HYPERTENSION

REACTIONS (14)
  - Pain of skin [Unknown]
  - Tremor [Unknown]
  - Oral pain [Unknown]
  - Vomiting projectile [Recovered/Resolved with Sequelae]
  - Myalgia [Recovered/Resolved with Sequelae]
  - Glossodynia [Unknown]
  - Chills [Unknown]
  - Asthma [Unknown]
  - Disease recurrence [Unknown]
  - Off label use [Unknown]
  - Product use issue [Unknown]
  - Drug ineffective for unapproved indication [Unknown]
  - Alopecia [Recovering/Resolving]
  - Tremor [Recovered/Resolved with Sequelae]

NARRATIVE: CASE EVENT DATE: 20200106
